FAERS Safety Report 9305099 (Version 2)
Quarter: 2013Q2

REPORT INFORMATION
  Report Type: Report from Study
  Country: JP (occurrence: JP)
  Receive Date: 20130523
  Receipt Date: 20130614
  Transmission Date: 20140414
  Serious: Yes (Life-Threatening)
  Sender: FDA-Public Use
  Company Number: JP-SANOFI-AVENTIS-2013SA049727

PATIENT
  Age: 84 Year
  Sex: Male
  Weight: 49 kg

DRUGS (7)
  1. LANTUS SOLOSTAR [Suspect]
     Indication: TYPE 2 DIABETES MELLITUS
     Dosage: DOSE:12 UNIT(S)
     Route: 058
     Dates: start: 20121026, end: 20121228
  2. LANTUS SOLOSTAR [Suspect]
     Indication: TYPE 2 DIABETES MELLITUS
     Dosage: DOSE:14 UNIT(S)
     Route: 058
     Dates: start: 20121228, end: 20130118
  3. SOLOSTAR [Suspect]
     Indication: DEVICE THERAPY
     Dates: start: 20121026, end: 20130118
  4. JANUVIA [Concomitant]
     Indication: TYPE 2 DIABETES MELLITUS
     Route: 048
     Dates: start: 20120928, end: 20130118
  5. NOVOLIN R [Concomitant]
     Indication: TYPE 2 DIABETES MELLITUS
     Dosage: BEFORE BREAKFAST, LUNCH AND DINNER: 12-8-4 DOSE:24 UNIT(S)
     Route: 058
     Dates: end: 20130118
  6. LEVEMIR [Concomitant]
     Indication: TYPE 2 DIABETES MELLITUS
     Dosage: BEFORE DINNER DOSE:12 UNIT(S)
     Route: 058
     Dates: end: 20121026
  7. ALLOZYM [Concomitant]
     Indication: PRODUCT USED FOR UNKNOWN INDICATION
     Route: 048

REACTIONS (2)
  - Colon cancer [Unknown]
  - Haemoglobin decreased [Recovering/Resolving]
